FAERS Safety Report 15248518 (Version 2)
Quarter: 2018Q3

REPORT INFORMATION
  Report Type: Report from Study
  Country: DE (occurrence: DE)
  Receive Date: 20180807
  Receipt Date: 20180906
  Transmission Date: 20181010
  Serious: Yes (Hospitalization, Other)
  Sender: FDA-Public Use
  Company Number: DE-MYLANLABS-2017M1078156

PATIENT
  Age: 76 Year
  Sex: Female

DRUGS (7)
  1. METHOTREXATE. [Suspect]
     Active Substance: METHOTREXATE
     Indication: PRODUCT USED FOR UNKNOWN INDICATION
     Dosage: 10 MG, QW
     Route: 065
     Dates: start: 2014, end: 2015
  2. HUMIRA [Suspect]
     Active Substance: ADALIMUMAB
     Indication: RHEUMATIC DISORDER
     Dosage: 40 MG, UNK
     Route: 058
     Dates: start: 201409, end: 201612
  3. INNOHEP [Concomitant]
     Active Substance: TINZAPARIN SODIUM
     Indication: PRODUCT USED FOR UNKNOWN INDICATION
     Dosage: 0.5 MG, UNK
  4. AMLODIPIN                          /00972401/ [Concomitant]
     Active Substance: AMLODIPINE BESYLATE
     Indication: PRODUCT USED FOR UNKNOWN INDICATION
     Dosage: 5 MG, UNK
  5. TORASEMID [Concomitant]
     Active Substance: TORSEMIDE
     Indication: PRODUCT USED FOR UNKNOWN INDICATION
     Dosage: 20 MG, UNK
  6. METHOTREXATE. [Suspect]
     Active Substance: METHOTREXATE
     Dosage: 7.5 MG, QW
     Route: 065
     Dates: start: 2015
  7. VALSARTAN. [Concomitant]
     Active Substance: VALSARTAN
     Indication: PRODUCT USED FOR UNKNOWN INDICATION
     Dosage: 160 MG, UNK

REACTIONS (13)
  - Chest X-ray abnormal [Recovered/Resolved]
  - Interstitial lung disease [Recovered/Resolved]
  - General physical health deterioration [Unknown]
  - Lymphoproliferative disorder [Recovered/Resolved]
  - Sepsis [Recovered/Resolved]
  - Sinus tachycardia [Unknown]
  - Pneumothorax traumatic [Unknown]
  - Chronic respiratory failure [Unknown]
  - Deep vein thrombosis [Recovered/Resolved]
  - Dyspnoea [Unknown]
  - Productive cough [Unknown]
  - Pulmonary embolism [Recovered/Resolved]
  - Pneumonia [Recovered/Resolved]

NARRATIVE: CASE EVENT DATE: 2014
